FAERS Safety Report 21050611 (Version 2)
Quarter: 2022Q3

REPORT INFORMATION
  Report Type: Spontaneous
  Country: US (occurrence: US)
  Receive Date: 20220707
  Receipt Date: 20220908
  Transmission Date: 20221026
  Serious: Yes (Hospitalization, Other)
  Sender: FDA-Public Use
  Company Number: US-NOVARTISPH-NVSC2022US149575

PATIENT

DRUGS (6)
  1. SUCCINYLCHOLINE CHLORIDE [Suspect]
     Active Substance: SUCCINYLCHOLINE CHLORIDE
     Indication: Foetal exposure during pregnancy
     Dosage: MATERNAL EXPOSURE DURING PREGNANCY: 100 MG
     Route: 064
  2. NOREPINEPHRINE [Suspect]
     Active Substance: NOREPINEPHRINE
     Indication: Foetal exposure during pregnancy
     Dosage: MATERNAL EXPOSURE DURING PREGNANCY:UNK
     Route: 064
  3. LIDOCAINE [Suspect]
     Active Substance: LIDOCAINE
     Indication: Foetal exposure during pregnancy
     Dosage: MATERNAL EXPOSURE DURING PREGNANCY: 100 MG
     Route: 064
  4. PROPOFOL [Suspect]
     Active Substance: PROPOFOL
     Indication: Foetal exposure during pregnancy
     Dosage: MATERNAL EXPOSURE DURING PREGNANCY: 150 MG
     Route: 064
  5. FENTANYL [Suspect]
     Active Substance: FENTANYL
     Indication: Foetal exposure during pregnancy
     Dosage: MATERNAL EXPOSURE DURING PREGNANCY: 100 UG
     Route: 064
  6. REMIFENTANIL [Suspect]
     Active Substance: REMIFENTANIL
     Indication: Foetal exposure during pregnancy
     Dosage: MATERNAL EXPOSURE DURING PREGNANCY: UNK
     Route: 064

REACTIONS (3)
  - Cardio-respiratory distress [Unknown]
  - Premature baby [Unknown]
  - Foetal exposure during delivery [Unknown]
